FAERS Safety Report 13134628 (Version 1)
Quarter: 2017Q1

REPORT INFORMATION
  Report Type: Spontaneous
  Country: US (occurrence: US)
  Receive Date: 20170120
  Receipt Date: 20170120
  Transmission Date: 20170428
  Serious: Yes (Other)
  Sender: FDA-Public Use
  Company Number: US-PFIZER INC-2017022547

PATIENT
  Sex: Female

DRUGS (4)
  1. LEVOXYL [Suspect]
     Active Substance: LEVOTHYROXINE SODIUM
     Dosage: 88 UG, UNK
  2. LEVOXYL [Suspect]
     Active Substance: LEVOTHYROXINE SODIUM
     Dosage: 94 UG (TAKING HALF OF THE 88 AND HALF OF THE 100 MCG )
  3. LEVOXYL [Suspect]
     Active Substance: LEVOTHYROXINE SODIUM
     Dosage: 75 UG, UNK
  4. LEVOXYL [Suspect]
     Active Substance: LEVOTHYROXINE SODIUM
     Dosage: 100 UG, UNK

REACTIONS (4)
  - Pneumonia [Unknown]
  - Psychomotor hyperactivity [Unknown]
  - Malaise [Unknown]
  - Drug ineffective [Unknown]
